FAERS Safety Report 19957616 (Version 2)
Quarter: 2021Q4

REPORT INFORMATION
  Report Type: Spontaneous
  Country: FR (occurrence: FR)
  Receive Date: 20211014
  Receipt Date: 20211118
  Transmission Date: 20220303
  Serious: Yes (Hospitalization)
  Sender: FDA-Public Use
  Company Number: None

PATIENT
  Age: 64 Year
  Sex: Male
  Weight: 70 kg

DRUGS (6)
  1. KETOCONAZOLE [Suspect]
     Active Substance: KETOCONAZOLE
     Indication: Urinary incontinence
     Route: 003
     Dates: start: 202104
  2. ALFUZOSIN [Suspect]
     Active Substance: ALFUZOSIN
     Indication: Urinary incontinence
     Route: 048
     Dates: start: 202008
  3. OCREVUS [Suspect]
     Active Substance: OCRELIZUMAB
     Indication: Multiple sclerosis
     Dosage: ; CYCLICAL
     Route: 042
     Dates: start: 202008, end: 20210627
  4. DULOXETINE [Suspect]
     Active Substance: DULOXETINE
     Indication: Pain
     Route: 048
     Dates: start: 202008
  5. TRILEPTAL [Suspect]
     Active Substance: OXCARBAZEPINE
     Indication: Epilepsy
     Route: 048
     Dates: start: 202008
  6. PREGABALIN [Suspect]
     Active Substance: PREGABALIN
     Indication: Pain
     Route: 048
     Dates: start: 202008

REACTIONS (4)
  - Eczema [Not Recovered/Not Resolved]
  - Eosinophilia [Recovering/Resolving]
  - Off label use [Unknown]
  - Product use in unapproved indication [Unknown]

NARRATIVE: CASE EVENT DATE: 20210401
